FAERS Safety Report 13792806 (Version 1)
Quarter: 2017Q3

REPORT INFORMATION
  Report Type: Report from Study
  Country: US (occurrence: US)
  Receive Date: 20170726
  Receipt Date: 20170726
  Transmission Date: 20171127
  Serious: Yes (Hospitalization, Other)
  Sender: FDA-Public Use
  Company Number: US-AUROBINDO-AUR-APL-2017-37443

PATIENT
  Age: 69 Year
  Sex: Male
  Weight: 91 kg

DRUGS (2)
  1. VANCOMYCIN [Suspect]
     Active Substance: VANCOMYCIN
     Indication: ENTEROCOCCAL BACTERAEMIA
     Dosage: 22 MG/KG, TWO TIMES A DAY
     Route: 042
  2. LEVOFLOXACIN. [Suspect]
     Active Substance: LEVOFLOXACIN
     Indication: ENTEROCOCCAL BACTERAEMIA

REACTIONS (1)
  - Endocarditis enterococcal [Recovered/Resolved]
